FAERS Safety Report 16077708 (Version 1)
Quarter: 2019Q1

REPORT INFORMATION
  Report Type: Spontaneous
  Country: US (occurrence: US)
  Receive Date: 20190315
  Receipt Date: 20190315
  Transmission Date: 20190418
  Serious: Yes (Other)
  Sender: FDA-Public Use
  Company Number: US-PFIZER INC-2019111454

PATIENT
  Age: 80 Year
  Sex: Male
  Weight: 95.25 kg

DRUGS (1)
  1. XALATAN [Suspect]
     Active Substance: LATANOPROST
     Indication: GLAUCOMA
     Dosage: A COUPLE DROPS IN MORNING AND A COUPLE DROPS IN EVENING

REACTIONS (2)
  - Intraocular pressure increased [Unknown]
  - Cataract [Unknown]
